FAERS Safety Report 6254161-2 (Version None)
Quarter: 2009Q3

REPORT INFORMATION
  Report Type: 
  Country: None (occurrence: None)
  Receive Date: 20090702
  Receipt Date: 20090623
  Transmission Date: 20100115
  Serious: Yes (Hospitalization)
  Sender: FDA-Public Use
  Company Number: PHHO2009US07530

PATIENT
  Sex: Female
  Weight: 60 kg

DRUGS (8)
  1. EXELON [Suspect]
     Indication: DEMENTIA ALZHEIMER'S TYPE
     Dosage: 18 MG 10 CM PATCH
     Route: 062
     Dates: start: 20071023
  2. EXELON [Suspect]
     Indication: DEMENTIA ALZHEIMER'S TYPE
     Dosage: NO TREATMENT
     Route: 062
  3. BLINDED NO TREATMENT RECEIVED NOMED [Suspect]
     Indication: DEMENTIA ALZHEIMER'S TYPE
     Dosage: NO TREATMENT
     Route: 062
  4. LOVASTATIN [Concomitant]
     Indication: HYPERCHOLESTEROLAEMIA
     Dosage: UNK
  5. GLIPIZIDE [Concomitant]
     Indication: TYPE 2 DIABETES MELLITUS
     Dosage: UNK
  6. PRILOSEC [Concomitant]
     Indication: HIATUS HERNIA
     Dosage: UNK
  7. SINGULAIR [Concomitant]
     Indication: SEASONAL ALLERGY
     Dosage: UNK
  8. ASPIRIN [Concomitant]
     Dosage: UNK

REACTIONS (2)
  - GASTRITIS [None]
  - VOMITING [None]
